FAERS Safety Report 19152430 (Version 1)
Quarter: 2021Q2

REPORT INFORMATION
  Report Type: Other
  Country: CA (occurrence: CA)
  Receive Date: 20210419
  Receipt Date: 20210419
  Transmission Date: 20210717
  Serious: Yes (Other)
  Sender: FDA-Public Use
  Company Number: CA-APOTEX-2021AP009150

PATIENT
  Age: 43 Year
  Sex: Male

DRUGS (9)
  1. EPOETIN ALFA [Suspect]
     Active Substance: ERYTHROPOIETIN
     Dosage: 8000 INTERNATIONAL UNIT, Q.WK.
     Route: 042
  2. ALLOPURINOL. [Suspect]
     Active Substance: ALLOPURINOL
     Indication: PRODUCT USED FOR UNKNOWN INDICATION
     Dosage: UNK
     Route: 065
  3. EPOETIN ALFA [Suspect]
     Active Substance: ERYTHROPOIETIN
     Dosage: 5000 INTERNATIONAL UNIT, Q.WK.
     Route: 042
  4. EPOETIN ALFA [Suspect]
     Active Substance: ERYTHROPOIETIN
     Dosage: 8000 INTERNATIONAL UNIT
     Route: 042
  5. EPOETIN ALFA [Suspect]
     Active Substance: ERYTHROPOIETIN
     Dosage: 5000 INTERNATIONAL UNIT, B.I.WK.
     Route: 042
  6. EPOETIN ALFA [Suspect]
     Active Substance: ERYTHROPOIETIN
     Dosage: 6000 INTERNATIONAL UNIT, T.I.W
     Route: 042
  7. EPOETIN ALFA [Suspect]
     Active Substance: ERYTHROPOIETIN
     Dosage: 4000 INTERNATIONAL UNIT, T.I.W
     Route: 042
  8. EPOETIN ALFA [Suspect]
     Active Substance: ERYTHROPOIETIN
     Dosage: 4000 INTERNATIONAL UNIT, Q.WK.
     Route: 042
  9. EPOETIN ALFA [Suspect]
     Active Substance: ERYTHROPOIETIN
     Indication: NEPHROGENIC ANAEMIA
     Dosage: 8000 INTERNATIONAL UNIT, 1 EVERY 14 DAYS
     Route: 042

REACTIONS (4)
  - Anti-erythropoietin antibody negative [Not Recovered/Not Resolved]
  - Focal segmental glomerulosclerosis [Not Recovered/Not Resolved]
  - Hyperparathyroidism [Not Recovered/Not Resolved]
  - Anaemia [Not Recovered/Not Resolved]
